FAERS Safety Report 5025957-X (Version None)
Quarter: 2006Q2

REPORT INFORMATION
  Report Type: 
  Country: None (occurrence: None)
  Receive Date: 20060614
  Receipt Date: 20060419
  Transmission Date: 20061013
  Serious: Yes (Hospitalization, Other)
  Sender: FDA-Public Use
  Company Number: US-MERCK-0604USA03818

PATIENT
  Age: 66 Year
  Sex: Male
  Weight: 98 kg

DRUGS (3)
  1. FOSAMAX [Suspect]
     Indication: BODY HEIGHT DECREASED
     Route: 048
     Dates: start: 20020401, end: 20040801
  2. PROSCAR [Concomitant]
     Route: 048
  3. FLOMAX [Concomitant]
     Route: 065

REACTIONS (4)
  - ARTHROPATHY [None]
  - DEVICE FAILURE [None]
  - GROWTH RETARDATION [None]
  - IMPAIRED HEALING [None]
